FAERS Safety Report 8454097-2 (Version None)
Quarter: 2012Q2

REPORT INFORMATION
  Report Type: 
  Country: None (occurrence: None)
  Receive Date: 20120620
  Receipt Date: 20120611
  Transmission Date: 20120825
  Serious: Yes (Other)
  Sender: FDA-Public Use
  Company Number: US-ASTRAZENECA-2010SE33607

PATIENT
  Age: 64 Year
  Sex: Female

DRUGS (1)
  1. NEXIUM [Suspect]
     Route: 048

REACTIONS (11)
  - ADVERSE EVENT [None]
  - DYSPHONIA [None]
  - RHEUMATOID ARTHRITIS [None]
  - ARTHRITIS [None]
  - DRUG DOSE OMISSION [None]
  - GASTROOESOPHAGEAL REFLUX DISEASE [None]
  - INTERVERTEBRAL DISC PROTRUSION [None]
  - PAIN [None]
  - ADVERSE DRUG REACTION [None]
  - OSTEOARTHRITIS [None]
  - NECK DEFORMITY [None]
